FAERS Safety Report 25849081 (Version 1)
Quarter: 2025Q3

REPORT INFORMATION
  Report Type: Spontaneous
  Country: US (occurrence: US)
  Receive Date: 20250925
  Receipt Date: 20250925
  Transmission Date: 20251021
  Serious: Yes (Hospitalization, Other)
  Sender: ABBVIE
  Company Number: US-ABBVIE-6447327

PATIENT
  Sex: Male
  Weight: 79.378 kg

DRUGS (6)
  1. REFRESH CLASSIC [Suspect]
     Active Substance: POLYVINYL ALCOHOL\POVIDONE
     Indication: Dry eye
     Route: 065
  2. REFRESH OPTIVE MEGA-3 [Suspect]
     Active Substance: CARBOXYMETHYLCELLULOSE SODIUM\GLYCERIN\POLYSORBATE 80
     Indication: Dry eye
     Route: 065
     Dates: start: 2015
  3. ZIOPTAN [Concomitant]
     Active Substance: TAFLUPROST
     Indication: Glaucoma
  4. REFRESH CELLUVISC [Suspect]
     Active Substance: CARBOXYMETHYLCELLULOSE SODIUM
     Indication: Dry eye
     Route: 065
     Dates: start: 2015
  5. REFRESH TEARS [Suspect]
     Active Substance: CARBOXYMETHYLCELLULOSE SODIUM
     Indication: Dry eye
     Route: 065
     Dates: start: 2015
  6. PREDNISOLONE [Concomitant]
     Active Substance: PREDNISOLONE
     Indication: Steroid therapy

REACTIONS (10)
  - Corneal transplant [Recovered/Resolved]
  - Eye infection [Recovered/Resolved]
  - Vision blurred [Unknown]
  - Corneal oedema [Not Recovered/Not Resolved]
  - Corneal disorder [Unknown]
  - Product physical consistency issue [Unknown]
  - Blindness unilateral [Not Recovered/Not Resolved]
  - Corneal transplant [Recovered/Resolved]
  - Corneal transplant [Recovered/Resolved]
  - Vision blurred [Not Recovered/Not Resolved]

NARRATIVE: CASE EVENT DATE: 20160101
